FAERS Safety Report 4343981-7 (Version None)
Quarter: 2004Q2

REPORT INFORMATION
  Report Type: 
  Country: None (occurrence: None)
  Receive Date: 20040421
  Receipt Date: 20040421
  Transmission Date: 20050107
  Serious: No
  Sender: FDA-Public Use
  Company Number: None

PATIENT
  Age: 48 Year
  Sex: Female
  Weight: 132.4503 kg

DRUGS (1)
  1. PERSANTINE [Suspect]
     Indication: CARDIAC STRESS TEST
     Dosage: 60 MG OVER 4 MIN IVP
     Route: 042
     Dates: start: 20040406

REACTIONS (2)
  - DIARRHOEA [None]
  - VOMITING [None]
